FAERS Safety Report 14681790 (Version 3)
Quarter: 2019Q1

REPORT INFORMATION
  Report Type: Report from Study
  Country: CA (occurrence: CA)
  Receive Date: 20180326
  Receipt Date: 20190213
  Transmission Date: 20190417
  Serious: Yes (Death)
  Sender: FDA-Public Use
  Company Number: CA-PFIZER INC-2018120362

PATIENT

DRUGS (7)
  1. ETOPOSIDE. [Suspect]
     Active Substance: ETOPOSIDE
     Indication: MEDULLOBLASTOMA
     Dosage: 2.5 MG/KG, CYCLIC (THREE CYCLES (ON DAY 0, 1 2) GIVEN EVERY 21 DAYS)
     Route: 042
  2. MESNA. [Suspect]
     Active Substance: MESNA
     Indication: MEDULLOBLASTOMA
     Dosage: UNK UNK, CYCLIC (THREE CYCLES) GIVEN EVERY 21 DAYS)
     Route: 065
  3. CYCLOPHOSPHAMIDE. [Suspect]
     Active Substance: CYCLOPHOSPHAMIDE
     Indication: MEDULLOBLASTOMA
     Dosage: 60 MG/KG, CYCLIC (THREE CYCLES (DAY 1, 2) GIVEN EVERY 21 DAYS)
     Route: 042
  4. CISPLATIN. [Suspect]
     Active Substance: CISPLATIN
     Indication: MEDULLOBLASTOMA
     Dosage: 3.5 MG/KG, CYCLIC (THREE CYCLES (DAY 0) GIVEN EVERY 21 DAYS)
     Route: 042
  5. VINCRISTINE SULFATE. [Suspect]
     Active Substance: VINCRISTINE SULFATE
     Indication: MEDULLOBLASTOMA
     Dosage: 0.05 MG/KG, CYCLIC (THREE CYCLES (ON DAY 0, 7, 14) GIVEN EVERY 21 DAYS)
     Route: 042
  6. CARBOPLATIN. [Suspect]
     Active Substance: CARBOPLATIN
     Indication: MEDULLOBLASTOMA
     Dosage: 17 MG/KG, CYCLIC ((DAY 0 AND 1) THREE CONSECUTIVE CYCLES OF HIGH-DOSE CARBOPLATIN)
     Route: 042
  7. THIOTEPA. [Suspect]
     Active Substance: THIOTEPA
     Indication: MEDULLOBLASTOMA
     Dosage: 10 MG/KG, CYCLIC (ON DAY 0, 1 AND 2) THREE CONSECUTIVE CYCLES)
     Route: 042

REACTIONS (1)
  - Death [Fatal]
